FAERS Safety Report 9839542 (Version 2)
Quarter: 2014Q1

REPORT INFORMATION
  Report Type: Spontaneous
  Country: US (occurrence: US)
  Receive Date: 20140124
  Receipt Date: 20140203
  Transmission Date: 20141002
  Serious: Yes (Hospitalization, Other)
  Sender: FDA-Public Use
  Company Number: US-BAXTER-2014BAX002754

PATIENT
  Age: 47 Year
  Sex: Male

DRUGS (5)
  1. DIANEAL LOW CALCIUM [Suspect]
     Indication: PERITONEAL DIALYSIS
     Route: 033
     Dates: start: 20120328
  2. DIANEAL LOW CALCIUM [Suspect]
     Route: 033
     Dates: start: 20120328
  3. DIANEAL LOW CALCIUM [Suspect]
     Indication: PERITONEAL DIALYSIS
     Route: 033
     Dates: start: 20120328
  4. DIANEAL LOW CALCIUM [Suspect]
     Route: 033
     Dates: start: 20120328
  5. DIANEAL LOW CALCIUM [Suspect]
     Route: 033

REACTIONS (4)
  - Diabetic neuropathy [Recovering/Resolving]
  - Arterial occlusive disease [Recovering/Resolving]
  - Fluid retention [Recovering/Resolving]
  - Hypertension [Recovering/Resolving]
